FAERS Safety Report 6684134-7 (Version None)
Quarter: 2010Q2

REPORT INFORMATION
  Report Type: 
  Country: None (occurrence: None)
  Receive Date: 20100416
  Receipt Date: 20100402
  Transmission Date: 20101027
  Serious: Yes (Hospitalization)
  Sender: FDA-Public Use
  Company Number: JP-PFIZER INC-2009294462

PATIENT
  Age: 66 Year
  Sex: Male
  Weight: 54 kg

DRUGS (6)
  1. CAMPTOSAR [Suspect]
     Indication: RECTAL CANCER
     Dosage: 131.6 MG/M2, 200 MG
     Route: 041
     Dates: start: 20081110, end: 20090323
  2. FLUOROURACIL [Suspect]
     Indication: RECTAL CANCER
     Dosage: 355.3 MG/M2, 540 MG
     Route: 013
     Dates: start: 20081110, end: 20090323
  3. FLUOROURACIL [Suspect]
     Dosage: 2302.6 MG/M2, 3500 MG
     Route: 013
     Dates: start: 20081110, end: 20090323
  4. ERBITUX [Suspect]
     Indication: RECTAL CANCER
     Dosage: UNK
     Route: 041
     Dates: start: 20090724, end: 20090821
  5. CALCIUM LEVOFOLINATE [Concomitant]
     Indication: RECTAL CANCER
     Dosage: 177.6 MG/M2, 270 MG
     Route: 013
     Dates: start: 20081110, end: 20090323
  6. AVASTIN [Concomitant]
     Indication: RECTAL CANCER
     Dosage: 250 MG, UNK
     Route: 041
     Dates: start: 20081110, end: 20090323

REACTIONS (4)
  - HAEMOGLOBIN DECREASED [None]
  - LEUKOPENIA [None]
  - LIVER DISORDER [None]
  - THROMBOCYTOPENIA [None]
